FAERS Safety Report 5021882-9 (Version None)
Quarter: 2006Q2

REPORT INFORMATION
  Report Type: 
  Country: None (occurrence: None)
  Receive Date: 20060609
  Receipt Date: 20060518
  Transmission Date: 20061013
  Serious: Yes (Hospitalization)
  Sender: FDA-Public Use
  Company Number: GBWYE635318MAY06

PATIENT
  Sex: Female

DRUGS (12)
  1. ENBREL [Suspect]
     Indication: PSORIATIC ARTHROPATHY
     Route: 058
     Dates: start: 20050923
  2. MORPHINE SULFATE [Concomitant]
     Dates: start: 20050912
  3. NITRAZEPAM [Concomitant]
     Dates: start: 20050912
  4. OMEPRAZOLE [Concomitant]
     Dates: start: 20050425
  5. ATORVASTATIN CALCIUM [Concomitant]
     Dates: start: 20040425, end: 20051020
  6. FOLIC ACID [Concomitant]
     Dates: start: 20051119
  7. AMITRIPTYLINE HCL [Concomitant]
     Dates: start: 20040425, end: 20051020
  8. FERROUS SULFATE TAB [Concomitant]
     Dates: start: 20050912
  9. FLUOXETINE [Concomitant]
     Dates: start: 20040424
  10. ORAMORPH SR [Concomitant]
     Dates: start: 20050912
  11. DOVONEX [Concomitant]
     Dates: start: 20051020
  12. AUGMENTIN '125' [Concomitant]
     Dates: start: 20051103, end: 20051111

REACTIONS (10)
  - ABDOMINAL PAIN [None]
  - ALANINE AMINOTRANSFERASE INCREASED [None]
  - ANOREXIA [None]
  - BLOOD ALKALINE PHOSPHATASE ABNORMAL [None]
  - BLOOD CREATINE PHOSPHOKINASE INCREASED [None]
  - CHEST PAIN [None]
  - CONFUSIONAL STATE [None]
  - GAMMA-GLUTAMYLTRANSFERASE INCREASED [None]
  - GENERAL PHYSICAL HEALTH DETERIORATION [None]
  - LIVER FUNCTION TEST ABNORMAL [None]
